FAERS Safety Report 25838748 (Version 1)
Quarter: 2025Q3

REPORT INFORMATION
  Report Type: Spontaneous
  Country: TR (occurrence: TR)
  Receive Date: 20250924
  Receipt Date: 20250924
  Transmission Date: 20251020
  Serious: Yes (Life-Threatening, Hospitalization, Other)
  Sender: CHEPLAPHARM
  Company Number: TR-BMED-L-2025-0023

PATIENT
  Age: 40 Year
  Sex: Male

DRUGS (19)
  1. OLANZAPINE [Suspect]
     Active Substance: OLANZAPINE
     Indication: Bipolar disorder
  2. PROPRANOLOL [Suspect]
     Active Substance: PROPRANOLOL HYDROCHLORIDE
  3. QUETIAPINE [Suspect]
     Active Substance: QUETIAPINE
     Dates: start: 2016
  4. QUETIAPINE [Suspect]
     Active Substance: QUETIAPINE
  5. QUETIAPINE [Suspect]
     Active Substance: QUETIAPINE
  6. QUETIAPINE [Suspect]
     Active Substance: QUETIAPINE
  7. ESCITALOPRAM [Suspect]
     Active Substance: ESCITALOPRAM OXALATE
  8. ESCITALOPRAM [Suspect]
     Active Substance: ESCITALOPRAM OXALATE
  9. ARIPIPRAZOLE [Suspect]
     Active Substance: ARIPIPRAZOLE
  10. VALPROATE [Suspect]
     Active Substance: VALPROIC ACID
     Indication: Bipolar disorder
     Dates: end: 2018
  11. LITHIUM [Suspect]
     Active Substance: LITHIUM
     Indication: Epilepsy
  12. LAMOTRIGINE [Suspect]
     Active Substance: LAMOTRIGINE
     Indication: Epilepsy
  13. LAMOTRIGINE [Suspect]
     Active Substance: LAMOTRIGINE
     Indication: Epilepsy
  14. VENLAFAXINE [Suspect]
     Active Substance: VENLAFAXINE HYDROCHLORIDE
     Indication: Epilepsy
  15. PHENYTOIN [Suspect]
     Active Substance: PHENYTOIN
  16. SERTRALINE [Suspect]
     Active Substance: SERTRALINE HYDROCHLORIDE
  17. TRAZODONE [Suspect]
     Active Substance: TRAZODONE HYDROCHLORIDE
  18. RISPERIDONE [Suspect]
     Active Substance: RISPERIDONE
  19. LEVETIRACETAM [Suspect]
     Active Substance: LEVETIRACETAM

REACTIONS (3)
  - Drug ineffective [Not Recovered/Not Resolved]
  - Epilepsy [Unknown]
  - Suicide attempt [Unknown]
